FAERS Safety Report 8005529-5 (Version None)
Quarter: 2011Q4

REPORT INFORMATION
  Report Type: 
  Country: None (occurrence: None)
  Receive Date: 20111223
  Receipt Date: 20111220
  Transmission Date: 20120403
  Serious: Yes (Other)
  Sender: FDA-Public Use
  Company Number: US-PFIZER INC-2011309445

PATIENT
  Sex: Female
  Weight: 88.435 kg

DRUGS (4)
  1. GEODON [Suspect]
     Dosage: 20 MG, 1X/DAY
     Route: 048
  2. SYNTHROID [Concomitant]
     Indication: HYPOTHYROIDISM
     Dosage: UNK
  3. GEODON [Suspect]
     Dosage: 40 MG, 1X/DAY
     Route: 048
  4. GEODON [Suspect]
     Indication: DEPRESSION
     Dosage: 60 MG, 1X/DAY
     Route: 048
     Dates: start: 20090101

REACTIONS (7)
  - WEIGHT DECREASED [None]
  - PANIC ATTACK [None]
  - NAUSEA [None]
  - HEADACHE [None]
  - WITHDRAWAL SYNDROME [None]
  - BLOOD CHOLESTEROL INCREASED [None]
  - MOOD ALTERED [None]
